FAERS Safety Report 23576861 (Version 1)
Quarter: 2024Q1

REPORT INFORMATION
  Report Type: Spontaneous
  Country: US (occurrence: None)
  Receive Date: 20240228
  Receipt Date: 20240228
  Transmission Date: 20240409
  Serious: Yes (Hospitalization)
  Sender: FDA-Public Use
  Company Number: None

PATIENT
  Sex: Female

DRUGS (2)
  1. BOSULIF [Suspect]
     Active Substance: BOSUTINIB MONOHYDRATE
     Indication: Chronic myeloid leukaemia
     Dosage: 400MG ONCE DAILY BY MOUTH?
     Route: 048
     Dates: start: 202312
  2. SPRYCEL [Concomitant]
     Active Substance: DASATINIB

REACTIONS (5)
  - Full blood count abnormal [None]
  - Splenomegaly [None]
  - Nausea [None]
  - Vomiting [None]
  - Drug intolerance [None]
